FAERS Safety Report 16721240 (Version 1)
Quarter: 2019Q3

REPORT INFORMATION
  Report Type: Spontaneous
  Country: IT (occurrence: IT)
  Receive Date: 20190820
  Receipt Date: 20190820
  Transmission Date: 20191005
  Serious: Yes (Other)
  Sender: FDA-Public Use
  Company Number: IT-JNJFOC-20190820224

PATIENT
  Age: 88 Year
  Sex: Female

DRUGS (1)
  1. RIVAROXABAN [Suspect]
     Active Substance: RIVAROXABAN
     Indication: CARDIAC DISORDER
     Dosage: 1 DF, QD
     Route: 048
     Dates: start: 20180901, end: 20190715

REACTIONS (2)
  - Renal failure [Unknown]
  - Creatinine renal clearance increased [Unknown]

NARRATIVE: CASE EVENT DATE: 20190715
